FAERS Safety Report 5485388-5 (Version None)
Quarter: 2007Q4

REPORT INFORMATION
  Report Type: 
  Country: None (occurrence: None)
  Receive Date: 20071015
  Receipt Date: 20071003
  Transmission Date: 20080405
  Serious: Yes (Hospitalization)
  Sender: FDA-Public Use
  Company Number: JP-BAYER-200715677GDS

PATIENT
  Age: 65 Year
  Sex: Male

DRUGS (1)
  1. BUFFERIN [Suspect]
     Indication: AORTIC ANEURYSM
     Route: 048
     Dates: end: 20040101

REACTIONS (16)
  - ARTERIAL OCCLUSIVE DISEASE [None]
  - ASTHENIA [None]
  - BLOOD CREATININE INCREASED [None]
  - BLOOD UREA INCREASED [None]
  - CARDIAC FAILURE [None]
  - DEHYDRATION [None]
  - DIALYSIS [None]
  - DIARRHOEA [None]
  - FAT EMBOLISM [None]
  - FATIGUE [None]
  - HYPERCOAGULATION [None]
  - LIVEDO RETICULARIS [None]
  - PLATELET COUNT DECREASED [None]
  - RED BLOOD CELL COUNT DECREASED [None]
  - RENAL FAILURE [None]
  - WHITE BLOOD CELL COUNT INCREASED [None]
